FAERS Safety Report 10525856 (Version 1)
Quarter: 2014Q4

REPORT INFORMATION
  Report Type: Spontaneous
  Country: AR (occurrence: AR)
  Receive Date: 20141017
  Receipt Date: 20141017
  Transmission Date: 20150528
  Serious: Yes (Hospitalization)
  Sender: FDA-Public Use
  Company Number: PHHY2014AR135635

PATIENT
  Sex: Female

DRUGS (1)
  1. DIOVAN D [Suspect]
     Active Substance: HYDROCHLOROTHIAZIDE\VALSARTAN
     Indication: HYPERTENSION
     Dosage: 1 DF (80MG), QD (AS REPORTED)
     Route: 048

REACTIONS (2)
  - Abasia [Recovering/Resolving]
  - Arrhythmia [Recovering/Resolving]
